FAERS Safety Report 17283720 (Version 1)
Quarter: 2020Q1

REPORT INFORMATION
  Report Type: Spontaneous
  Country: SE (occurrence: SE)
  Receive Date: 20200117
  Receipt Date: 20200117
  Transmission Date: 20200409
  Serious: Yes (Other)
  Sender: FDA-Public Use
  Company Number: SE-PFIZER INC-2020018184

PATIENT
  Age: 57 Year
  Sex: Female
  Weight: 142 kg

DRUGS (6)
  1. GABAPENTIN. [Suspect]
     Active Substance: GABAPENTIN
     Indication: NEURALGIA
     Dosage: 300 MG, 1X/DAY
     Dates: start: 201802, end: 201805
  2. ESCITALOPRAM [Concomitant]
     Active Substance: ESCITALOPRAM OXALATE
     Dosage: UNK
     Dates: start: 2017
  3. RELIFEX [Concomitant]
     Active Substance: NABUMETONE
     Dosage: UNK
     Dates: start: 199601
  4. GABAPENTIN. [Suspect]
     Active Substance: GABAPENTIN
     Indication: INTERVERTEBRAL DISC PROTRUSION
  5. PARAFLEX [Concomitant]
     Active Substance: CHLORZOXAZONE
     Dosage: UNK
     Dates: start: 2001
  6. PANODIL [Concomitant]
     Active Substance: ACETAMINOPHEN
     Dosage: UNK
     Dates: start: 1993

REACTIONS (8)
  - Apathy [Unknown]
  - Anal incontinence [Unknown]
  - Fatigue [Unknown]
  - Off label use [Unknown]
  - Dizziness [Unknown]
  - Urinary incontinence [Recovered/Resolved]
  - Product use in unapproved indication [Unknown]
  - Somnolence [Unknown]

NARRATIVE: CASE EVENT DATE: 2018
